FAERS Safety Report 6423572-4 (Version None)
Quarter: 2009Q4

REPORT INFORMATION
  Report Type: 
  Country: None (occurrence: None)
  Receive Date: 20091030
  Receipt Date: 20091030
  Transmission Date: 20100525
  Serious: No
  Sender: FDA-Public Use
  Company Number: None

PATIENT
  Age: 54 Year
  Sex: Female
  Weight: 81.6475 kg

DRUGS (1)
  1. BUPROPION HCL [Suspect]
     Dosage: ONE TABLET BID PO
     Route: 048

REACTIONS (1)
  - PRODUCT QUALITY ISSUE [None]
